FAERS Safety Report 9954795 (Version 1)
Quarter: 2014Q1

REPORT INFORMATION
  Report Type: Spontaneous
  Country: GB (occurrence: GB)
  Receive Date: 20140304
  Receipt Date: 20140304
  Transmission Date: 20141002
  Serious: Yes (Other)
  Sender: FDA-Public Use
  Company Number: GB-GLAXOSMITHKLINE-B0972184A

PATIENT
  Age: 26 Year
  Sex: Male
  Weight: 101 kg

DRUGS (2)
  1. ORLISTAT [Suspect]
  2. LEVOTHYROXINE [Concomitant]
     Route: 048
     Dates: end: 20131211

REACTIONS (1)
  - Hypothyroidism [Unknown]
